FAERS Safety Report 8894681 (Version 1)
Quarter: 2012Q4

REPORT INFORMATION
  Report Type: 
  Country: US (occurrence: US)
  Receive Date: 20121107
  Receipt Date: 20121107
  Transmission Date: 20130627
  Serious: No
  Sender: FDA-Public Use
  Company Number: US-AMGEN-USASP2011050431

PATIENT
  Sex: Female

DRUGS (3)
  1. ENBREL [Suspect]
     Indication: PSORIASIS
     Dosage: 25 mg, 2 times/wk
     Dates: start: 20021121, end: 201009
  2. ENBREL [Suspect]
     Indication: PSORIATIC ARTHROPATHY
  3. HUMIRA [Concomitant]

REACTIONS (3)
  - Injection site pain [Recovered/Resolved]
  - Psoriasis [Recovered/Resolved]
  - Rash macular [Unknown]
